FAERS Safety Report 9783901 (Version 1)
Quarter: 2013Q4

REPORT INFORMATION
  Report Type: Spontaneous
  Country: GB (occurrence: GB)
  Receive Date: 20131226
  Receipt Date: 20131226
  Transmission Date: 20140711
  Serious: Yes (Other)
  Sender: FDA-Public Use
  Company Number: PHHY2013GB148895

PATIENT
  Age: 47 Year
  Sex: Female
  Weight: 58 kg

DRUGS (13)
  1. GABAPENTIN [Suspect]
     Indication: NEURALGIA
     Dosage: 700 MG QD
     Route: 048
  2. CITALOPRAM [Concomitant]
  3. FLUOXETINE HYDROCHLORIDE [Concomitant]
  4. PARACETAMOL [Concomitant]
  5. FENTANYL [Concomitant]
     Route: 062
  6. LANSOPRAZOLE [Concomitant]
  7. EVOREL [Concomitant]
     Route: 062
  8. LOPERAMIDE [Concomitant]
  9. BUSCOPAN [Concomitant]
  10. BECLOMETASONE [Concomitant]
  11. SALBUTAMOL [Concomitant]
  12. IBUPROFEN [Concomitant]
  13. ORAMORPH [Concomitant]
     Route: 048

REACTIONS (1)
  - Teeth brittle [Not Recovered/Not Resolved]
